FAERS Safety Report 5429066-7 (Version None)
Quarter: 2007Q3

REPORT INFORMATION
  Report Type: 
  Country: None (occurrence: None)
  Receive Date: 20070829
  Receipt Date: 20070716
  Transmission Date: 20080115
  Serious: No
  Sender: FDA-Public Use
  Company Number: A0659226A

PATIENT
  Age: 56 Year
  Sex: Female
  Weight: 79.1 kg

DRUGS (2)
  1. MALARONE [Suspect]
     Indication: MALARIA
     Route: 048
     Dates: start: 20070403, end: 20070430
  2. SYNTHROID [Concomitant]

REACTIONS (2)
  - HOT FLUSH [None]
  - WEIGHT DECREASED [None]
